FAERS Safety Report 5783348-8 (Version None)
Quarter: 2008Q2

REPORT INFORMATION
  Report Type: 
  Country: None (occurrence: None)
  Receive Date: 20080605
  Receipt Date: 20080314
  Transmission Date: 20081010
  Serious: No
  Sender: FDA-Public Use
  Company Number: A0715500A

PATIENT
  Age: 46 Year
  Sex: Female

DRUGS (1)
  1. ALLI [Suspect]
     Route: 048
     Dates: end: 20080229

REACTIONS (3)
  - ABDOMINAL PAIN LOWER [None]
  - ABNORMAL FAECES [None]
  - RECTAL DISCHARGE [None]
